FAERS Safety Report 21045251 (Version 1)
Quarter: 2022Q3

REPORT INFORMATION
  Report Type: Spontaneous
  Country: ES (occurrence: ES)
  Receive Date: 20220705
  Receipt Date: 20220705
  Transmission Date: 20221027
  Serious: Yes (Other)
  Sender: FDA-Public Use
  Company Number: None

PATIENT
  Age: 46 Year
  Sex: Male

DRUGS (7)
  1. DAPTOMYCIN [Suspect]
     Active Substance: DAPTOMYCIN
     Indication: Disseminated mycobacterium avium complex infection
     Route: 042
     Dates: start: 20220408, end: 20220411
  2. PIPERACILLIN SODIUM\TAZOBACTAM SODIUM [Suspect]
     Active Substance: PIPERACILLIN SODIUM\TAZOBACTAM SODIUM
     Indication: Disseminated mycobacterium avium complex infection
     Route: 042
     Dates: start: 20220408, end: 20220412
  3. ISONIAZID [Concomitant]
     Active Substance: ISONIAZID
     Indication: Disseminated mycobacterium avium complex infection
     Route: 048
     Dates: start: 20220126, end: 20220407
  4. CLARITHROMYCIN [Concomitant]
     Active Substance: CLARITHROMYCIN
     Indication: Disseminated mycobacterium avium complex infection
     Route: 048
     Dates: start: 20220314, end: 20220407
  5. RIFABUTINA (7200A) [Concomitant]
     Indication: Disseminated mycobacterium avium complex infection
     Route: 048
     Dates: start: 20220314, end: 20220407
  6. RIFAMPIN [Concomitant]
     Active Substance: RIFAMPIN
     Indication: Disseminated mycobacterium avium complex infection
     Route: 042
     Dates: start: 20220408, end: 20220413
  7. ATRIPLA 600 mg/200 mg/245 mg COMPRIMIDOS RECUBIERTOS CON PELICULA , 30 [Concomitant]
     Indication: HIV infection
     Dosage: 30 TABLETS
     Route: 048
     Dates: start: 202201

REACTIONS (1)
  - Fixed eruption [Recovered/Resolved]

NARRATIVE: CASE EVENT DATE: 20220412
